FAERS Safety Report 22302665 (Version 1)
Quarter: 2023Q2

REPORT INFORMATION
  Report Type: Spontaneous
  Country: FR (occurrence: FR)
  Receive Date: 20230510
  Receipt Date: 20230510
  Transmission Date: 20230722
  Serious: Yes (Death, Other)
  Sender: FDA-Public Use
  Company Number: FR-ASTELLAS-2023US014107

PATIENT
  Age: 81 Year
  Sex: Female
  Weight: 35 kg

DRUGS (1)
  1. XOSPATA [Suspect]
     Active Substance: GILTERITINIB
     Indication: Leukaemia
     Dosage: 40 MG, THRICE DAILY (IN THE MORNING)
     Route: 048
     Dates: start: 20230330

REACTIONS (1)
  - Malignant neoplasm progression [Fatal]
